FAERS Safety Report 6143174-7 (Version None)
Quarter: 2009Q2

REPORT INFORMATION
  Report Type: 
  Country: None (occurrence: None)
  Receive Date: 20090403
  Receipt Date: 20090327
  Transmission Date: 20091009
  Serious: No
  Sender: FDA-Public Use
  Company Number: US-B.I. PHARMACEUTICALS,INC./RIDGEFIELD-2009-BP-03805BP

PATIENT
  Age: 57 Year
  Sex: Female

DRUGS (3)
  1. FLOMAX [Suspect]
     Indication: URINARY RETENTION
     Dosage: .4MG
     Route: 048
     Dates: start: 20080101, end: 20080101
  2. FLOMAX [Suspect]
     Indication: BLOOD URINE PRESENT
  3. TOPROL-XL [Concomitant]
     Indication: CARDIAC DISORDER

REACTIONS (4)
  - DIZZINESS [None]
  - HEART RATE DECREASED [None]
  - LOSS OF CONSCIOUSNESS [None]
  - URINARY RETENTION [None]
